FAERS Safety Report 4952191-1 (Version None)
Quarter: 2006Q1

REPORT INFORMATION
  Report Type: 
  Country: None (occurrence: None)
  Receive Date: 20060127
  Receipt Date: 20050609
  Transmission Date: 20060701
  Serious: Yes (Hospitalization)
  Sender: FDA-Public Use
  Company Number: 05-05-0989

PATIENT
  Age: 64 Year
  Sex: Female
  Weight: 51.7101 kg

DRUGS (4)
  1. CLOZAPINE [Suspect]
     Indication: BIPOLAR DISORDER
     Dosage: 12.5MG QD, ORAL
     Route: 048
     Dates: start: 20040201, end: 20050603
  2. CLOZAPINE [Suspect]
     Indication: PSYCHOTIC DISORDER
     Dosage: 12.5MG QD, ORAL
     Route: 048
     Dates: start: 20040201, end: 20050603
  3. ATIVAN [Suspect]
     Indication: BIPOLAR DISORDER
     Dosage: 0.5MG BID
  4. TRAZODONE HCL [Suspect]
     Indication: SOMNOLENCE
     Dosage: 50MG HS, ORAL
     Route: 048

REACTIONS (2)
  - BRADYCARDIA [None]
  - SOMNOLENCE [None]
